FAERS Safety Report 10017077 (Version 3)
Quarter: 2014Q2

REPORT INFORMATION
  Report Type: Report from Study
  Country: US (occurrence: US)
  Receive Date: 20140318
  Receipt Date: 20140516
  Transmission Date: 20141212
  Serious: Yes (Other)
  Sender: FDA-Public Use
  Company Number: US-BIOGENIDEC-2014BI022552

PATIENT
  Age: 47 Year
  Sex: Female

DRUGS (4)
  1. TECFIDERA [Suspect]
     Indication: MULTIPLE SCLEROSIS
     Route: 048
     Dates: start: 201305
  2. AMPYRA [Concomitant]
     Route: 048
     Dates: start: 20130514, end: 20140306
  3. BACLOFEN [Concomitant]
     Indication: MUSCLE SPASMS
  4. NUVIGIL [Concomitant]

REACTIONS (2)
  - Syncope [Recovered/Resolved]
  - Flushing [Unknown]
